FAERS Safety Report 14405857 (Version 4)
Quarter: 2018Q1

REPORT INFORMATION
  Report Type: Spontaneous
  Country: US (occurrence: US)
  Receive Date: 20180118
  Receipt Date: 20180309
  Transmission Date: 20180509
  Serious: Yes (Other)
  Sender: FDA-Public Use
  Company Number: US-009507513-1801USA003964

PATIENT
  Age: 28 Year
  Sex: Female
  Weight: 87.98 kg

DRUGS (2)
  1. NEXPLANON [Suspect]
     Active Substance: ETONOGESTREL
     Indication: CONTRACEPTION
     Dosage: 1 DF, LEFT ARM
     Route: 059
     Dates: start: 20171129, end: 20180302
  2. NEXPLANON [Suspect]
     Active Substance: ETONOGESTREL
     Dosage: 1 DF, UNK
     Route: 059
     Dates: start: 20150127, end: 20171129

REACTIONS (6)
  - Complication of device removal [Recovered/Resolved]
  - Implant site pain [Recovered/Resolved]
  - Device dislocation [Recovered/Resolved]
  - Device difficult to use [Recovered/Resolved]
  - Complication associated with device [Recovered/Resolved]
  - Surgery [Recovered/Resolved]

NARRATIVE: CASE EVENT DATE: 20171130
